FAERS Safety Report 8529331-0 (Version None)
Quarter: 2012Q3

REPORT INFORMATION
  Report Type: 
  Country: None (occurrence: None)
  Receive Date: 20120717
  Receipt Date: 20120717
  Transmission Date: 20120928
  Serious: Yes (Disabling)
  Sender: FDA-Public Use
  Company Number: None

PATIENT
  Age: 61 Year
  Sex: Male
  Weight: 99.7913 kg

DRUGS (4)
  1. LOSARTAN POTASSIUM [Concomitant]
  2. PRAVASTATIN [Concomitant]
  3. COLGATE GEL KAM [Suspect]
     Indication: PROPHYLAXIS
     Dosage: TWICE PER DAY TOP
     Route: 061
     Dates: start: 20120616, end: 20120628
  4. DETROL [Concomitant]

REACTIONS (5)
  - MOUTH ULCERATION [None]
  - PALATAL DISORDER [None]
  - GINGIVAL SWELLING [None]
  - GINGIVAL ULCERATION [None]
  - GINGIVAL BLEEDING [None]
